FAERS Safety Report 19976072 (Version 6)
Quarter: 2021Q4

REPORT INFORMATION
  Report Type: Spontaneous
  Country: CN (occurrence: CN)
  Receive Date: 20211021
  Receipt Date: 20211230
  Transmission Date: 20220303
  Serious: Yes (Life-Threatening, Other)
  Sender: FDA-Public Use
  Company Number: CN-BEH-2021136927

PATIENT
  Age: 21 Year
  Sex: Male

DRUGS (7)
  1. ALBURX [Suspect]
     Active Substance: ALBUMIN HUMAN
     Dosage: UNK
     Route: 051
     Dates: start: 20210921, end: 20210921
  2. ALBURX [Suspect]
     Active Substance: ALBUMIN HUMAN
     Dosage: UNK
     Route: 051
     Dates: start: 20210922, end: 20210922
  3. ALBURX [Suspect]
     Active Substance: ALBUMIN HUMAN
     Dosage: 10 MILLILITER
     Route: 051
     Dates: start: 20211010, end: 20211010
  4. BROMHEXINE [Concomitant]
     Active Substance: BROMHEXINE
     Dosage: UNK
     Dates: start: 20211010
  5. RIBONUCLEIC ACID [Concomitant]
     Active Substance: RIBONUCLEIC ACID
     Dosage: UNK
     Dates: start: 20211010
  6. LEVOFLOXACIN [Concomitant]
     Active Substance: LEVOFLOXACIN
     Dosage: UNK
     Dates: start: 20211010
  7. TORSEMIDE [Concomitant]
     Active Substance: TORSEMIDE
     Dosage: UNK
     Dates: start: 20211010

REACTIONS (15)
  - Coma [Recovered/Resolved]
  - Anaphylactic shock [Recovering/Resolving]
  - Arrhythmia [Recovering/Resolving]
  - Atrial fibrillation [Not Recovered/Not Resolved]
  - Muscle spasms [Recovering/Resolving]
  - Nausea [Recovering/Resolving]
  - Vomiting [Recovering/Resolving]
  - Heart rate increased [Recovering/Resolving]
  - Liquid product physical issue [Recovering/Resolving]
  - Liquid product physical issue [Recovered/Resolved]
  - Liquid product physical issue [Recovering/Resolving]
  - Liquid product physical issue [Not Recovered/Not Resolved]
  - Liquid product physical issue [Recovering/Resolving]
  - Liquid product physical issue [Recovering/Resolving]
  - Liquid product physical issue [Recovering/Resolving]

NARRATIVE: CASE EVENT DATE: 20211010
